FAERS Safety Report 13941554 (Version 1)
Quarter: 2017Q3

REPORT INFORMATION
  Report Type: Spontaneous
  Country: US (occurrence: US)
  Receive Date: 20170906
  Receipt Date: 20170906
  Transmission Date: 20171127
  Serious: No
  Sender: FDA-Public Use
  Company Number: US-BAYER-2017-170478

PATIENT
  Age: 86 Year
  Sex: Male
  Weight: 72.97 kg

DRUGS (7)
  1. SIMVASTATIN. [Concomitant]
     Active Substance: SIMVASTATIN
     Dosage: UNK
  2. METHOTREXATE [METHOTREXATE] [Concomitant]
     Active Substance: METHOTREXATE
     Dosage: UNK
  3. ALEVE [Suspect]
     Active Substance: NAPROXEN SODIUM
     Indication: RHEUMATIC DISORDER
     Dosage: 2 DF, WILL BE TAKING ONE MORE BEFORE GOING TO BED
     Route: 048
     Dates: start: 20170905
  4. FOLIC ACID. [Concomitant]
     Active Substance: FOLIC ACID
     Dosage: UNK
  5. ALEVE [Suspect]
     Active Substance: NAPROXEN SODIUM
     Indication: RHEUMATIC DISORDER
     Dosage: 2 DF, BID
     Route: 048
     Dates: start: 20170902, end: 20170902
  6. METFORMIN [Concomitant]
     Active Substance: METFORMIN HYDROCHLORIDE
     Dosage: UNK
  7. VITAMIN E [Concomitant]
     Active Substance: .ALPHA.-TOCOPHEROL
     Dosage: UNK

REACTIONS (2)
  - Hyperhidrosis [Recovered/Resolved]
  - Product use issue [Unknown]

NARRATIVE: CASE EVENT DATE: 20170902
